FAERS Safety Report 4930501-9 (Version None)
Quarter: 2006Q1

REPORT INFORMATION
  Report Type: 
  Country: None (occurrence: None)
  Receive Date: 20060302
  Receipt Date: 20060223
  Transmission Date: 20060701
  Serious: Yes (Hospitalization)
  Sender: FDA-Public Use
  Company Number: JP-MERCK-0602USA05850

PATIENT
  Age: 68 Year
  Sex: Male

DRUGS (5)
  1. COZAAR [Suspect]
     Route: 048
  2. ALESION [Concomitant]
     Route: 048
  3. NEORAL [Concomitant]
     Route: 048
  4. PREDONINE [Concomitant]
     Route: 065
  5. LANSOPRAZOLE [Concomitant]
     Route: 048

REACTIONS (1)
  - RHABDOMYOLYSIS [None]
